FAERS Safety Report 4871646-1 (Version None)
Quarter: 2006Q1

REPORT INFORMATION
  Report Type: 
  Country: None (occurrence: None)
  Receive Date: 20060104
  Receipt Date: 20051222
  Transmission Date: 20060701
  Serious: Yes (Hospitalization)
  Sender: FDA-Public Use
  Company Number: PHHO2005FR19925

PATIENT
  Age: 41 Year
  Sex: Female

DRUGS (14)
  1. CYCLOSPORINE [Suspect]
     Indication: RENAL TRANSPLANT
     Dosage: 120 MG, BID
     Route: 048
     Dates: start: 20050616, end: 20050907
  2. CYCLOSPORINE [Suspect]
     Dosage: 110 MG, BID
     Route: 048
     Dates: start: 20050907
  3. MYCOPHENOLATE MOFETIL [Suspect]
     Indication: RENAL TRANSPLANT
     Dosage: 1000 MG, BID
     Route: 048
     Dates: start: 20050614, end: 20050831
  4. MYCOPHENOLATE MOFETIL [Suspect]
     Dosage: 500 MG, BID
     Route: 048
     Dates: start: 20050901, end: 20050902
  5. MYCOPHENOLATE MOFETIL [Suspect]
     Route: 048
     Dates: start: 20050929
  6. DACLIZUMAB [Suspect]
     Indication: RENAL TRANSPLANT
     Dosage: 120 MG, ONCE/SINGLE
     Route: 042
     Dates: start: 20050614, end: 20050614
  7. DACLIZUMAB [Suspect]
     Dosage: 120 MG, ONCE/SINGLE
     Route: 042
     Dates: start: 20050628, end: 20050628
  8. SOLU-MEDROL [Suspect]
     Indication: RENAL TRANSPLANT
     Dosage: 10 MG, QD
     Route: 048
     Dates: start: 20050614
  9. BACTRIM DS [Concomitant]
     Dates: start: 20050616
  10. AMLOR [Concomitant]
     Dates: start: 20050616
  11. EUPRESSYL [Concomitant]
     Dates: start: 20050619
  12. HYPERIUM [Concomitant]
     Dates: start: 20050815, end: 20050902
  13. ZELITREX [Concomitant]
  14. MOPRAL [Concomitant]
     Dates: start: 20050614

REACTIONS (4)
  - AGRANULOCYTOSIS [None]
  - HYPERTENSION [None]
  - RENAL FAILURE ACUTE [None]
  - URINARY TRACT INFECTION [None]
